FAERS Safety Report 5885861-1 (Version None)
Quarter: 2008Q3

REPORT INFORMATION
  Report Type: 
  Country: None (occurrence: None)
  Receive Date: 20080917
  Receipt Date: 20080908
  Transmission Date: 20090109
  Serious: Yes (Hospitalization)
  Sender: FDA-Public Use
  Company Number: PR-JNJFOC-20080901649

PATIENT
  Age: 69 Year
  Sex: Female

DRUGS (4)
  1. REMICADE [Suspect]
     Dosage: 3RD INDUCTION DOSE
     Route: 042
  2. REMICADE [Suspect]
     Indication: CROHN'S DISEASE
     Dosage: 2 INDUCTION DOSES
     Route: 042
  3. NSAID'S [Suspect]
     Indication: DRUG USE FOR UNKNOWN INDICATION
  4. RELAFEN [Concomitant]
     Indication: ARTHRALGIA

REACTIONS (1)
  - PHOTOSENSITIVITY REACTION [None]
